FAERS Safety Report 10470895 (Version 1)
Quarter: 2014Q3

REPORT INFORMATION
  Report Type: Spontaneous
  Country: US (occurrence: None)
  Receive Date: 20140917
  Receipt Date: 20140917
  Transmission Date: 20150326
  Serious: No
  Sender: FDA-Public Use
  Company Number: 2014CT000094

PATIENT
  Age: 55 Year
  Sex: Male
  Weight: 90.27 kg

DRUGS (2)
  1. KORLYM [Suspect]
     Active Substance: MIFEPRISTONE
     Indication: CUSHING^S SYNDROME
     Dates: start: 201402
  2. AFINITOR [Concomitant]
     Active Substance: EVEROLIMUS

REACTIONS (5)
  - Fatigue [None]
  - Medial tibial stress syndrome [None]
  - Weight decreased [None]
  - Decreased appetite [None]
  - Myalgia [None]
